FAERS Safety Report 5674586-3 (Version None)
Quarter: 2008Q1

REPORT INFORMATION
  Report Type: 
  Country: None (occurrence: None)
  Receive Date: 20080319
  Receipt Date: 20080319
  Transmission Date: 20080703
  Serious: Yes (Hospitalization)
  Sender: FDA-Public Use
  Company Number: None

PATIENT
  Sex: Female
  Weight: 56.2 kg

DRUGS (1)
  1. RECLAST [Suspect]
     Indication: OSTEOPOROSIS
     Dosage: 5MG/100ML ONCE IV BOLUS  1 DOSE
     Route: 040
     Dates: start: 20080124, end: 20080124

REACTIONS (2)
  - BLOOD PHOSPHORUS DECREASED [None]
  - CALCIUM DEFICIENCY [None]
